FAERS Safety Report 9368944 (Version 1)
Quarter: 2013Q2

REPORT INFORMATION
  Report Type: Spontaneous
  Country: IL (occurrence: None)
  Receive Date: 20130621
  Receipt Date: 20130621
  Transmission Date: 20140414
  Serious: Yes (Other)
  Sender: FDA-Public Use
  Company Number: 2013-2551

PATIENT
  Sex: Female

DRUGS (1)
  1. SOMATULINE [Suspect]
     Indication: NEUROENDOCRINE TUMOUR
     Route: 058
     Dates: start: 20100719

REACTIONS (2)
  - Intestinal obstruction [None]
  - Urinary tract infection [None]
